FAERS Safety Report 12655295 (Version 3)
Quarter: 2016Q4

REPORT INFORMATION
  Report Type: Report from Study
  Country: ES (occurrence: ES)
  Receive Date: 20160816
  Receipt Date: 20161018
  Transmission Date: 20170207
  Serious: Yes (Other)
  Sender: FDA-Public Use
  Company Number: ES-PFIZER INC-2016385397

PATIENT
  Age: 51 Year
  Sex: Female

DRUGS (3)
  1. DEXKETOPROFEN [Suspect]
     Active Substance: DEXKETOPROFEN
     Dosage: UNK
  2. IBUPROFEN. [Suspect]
     Active Substance: IBUPROFEN
     Dosage: 50 MG, UNK
  3. IBUPROFEN. [Suspect]
     Active Substance: IBUPROFEN
     Dosage: UNK

REACTIONS (4)
  - Angioedema [Unknown]
  - Anaphylactic reaction [Unknown]
  - Pruritus [Unknown]
  - Urticaria [Unknown]
